FAERS Safety Report 9701398 (Version 2)
Quarter: 2015Q3

REPORT INFORMATION
  Report Type: Spontaneous
  Country: US (occurrence: US)
  Receive Date: 20131121
  Receipt Date: 20150803
  Transmission Date: 20151125
  Serious: No
  Sender: FDA-Public Use
  Company Number: US-GILEAD-2008-0016937

PATIENT
  Age: 82 Year
  Sex: Female

DRUGS (7)
  1. LETAIRIS [Suspect]
     Active Substance: AMBRISENTAN
     Indication: PULMONARY ARTERIAL HYPERTENSION
     Route: 048
  2. REQUIP [Concomitant]
     Active Substance: ROPINIROLE HYDROCHLORIDE
  3. L-ARGININE [Concomitant]
     Active Substance: ARGININE
  4. OMEPRAZOLE. [Concomitant]
     Active Substance: OMEPRAZOLE
  5. MIACALCIN [Concomitant]
     Active Substance: CALCITONIN SALMON
  6. VITAMIN D [Concomitant]
     Active Substance: CHOLECALCIFEROL
  7. DYNACIRC CR [Concomitant]
     Active Substance: ISRADIPINE

REACTIONS (2)
  - Nasal congestion [Not Recovered/Not Resolved]
  - Oedema [Not Recovered/Not Resolved]
